FAERS Safety Report 11258200 (Version 1)
Quarter: 2015Q3

REPORT INFORMATION
  Report Type: Spontaneous
  Country: US (occurrence: None)
  Receive Date: 20150709
  Receipt Date: 20150709
  Transmission Date: 20151125
  Serious: Yes (Death)
  Sender: FDA-Public Use
  Company Number: None

PATIENT
  Age: 60 Year
  Sex: Female
  Weight: 48.08 kg

DRUGS (2)
  1. CEFTRIAXONE 1 GRAM LUPIN PHARMACEUTICALS, INC [Suspect]
     Active Substance: CEFTRIAXONE
     Indication: PHARYNGITIS STREPTOCOCCAL
     Route: 030
  2. CEFTRIAXONE 1 GRAM LUPIN PHARMACEUTICALS, INC [Suspect]
     Active Substance: CEFTRIAXONE
     Indication: PHARYNGITIS
     Route: 030

REACTIONS (4)
  - Nausea [None]
  - Cardiac arrest [None]
  - Dyspnoea [None]
  - Pneumothorax [None]

NARRATIVE: CASE EVENT DATE: 20150630
